FAERS Safety Report 9424513 (Version 1)
Quarter: 2013Q3

REPORT INFORMATION
  Report Type: Spontaneous
  Country: US (occurrence: None)
  Receive Date: 20130726
  Receipt Date: 20130726
  Transmission Date: 20140515
  Serious: Yes (Hospitalization)
  Sender: FDA-Public Use
  Company Number: None

PATIENT
  Age: 60 Year
  Sex: Male

DRUGS (4)
  1. PEGASYS [Suspect]
     Indication: HEPATOCELLULAR CARCINOMA
     Dosage: INJECT 180 MCG UNDER THE SKIN EVERY WEEK.
     Dates: start: 20130621, end: 20130715
  2. RIBASPHERE [Concomitant]
  3. RIBASPHERE 200MG TAB [Concomitant]
  4. INCIVEK 375MG [Concomitant]

REACTIONS (1)
  - Blindness [None]
